FAERS Safety Report 5829706-4 (Version None)
Quarter: 2008Q3

REPORT INFORMATION
  Report Type: 
  Country: None (occurrence: None)
  Receive Date: 20080729
  Receipt Date: 20080715
  Transmission Date: 20090109
  Serious: Yes (Life-Threatening, Hospitalization)
  Sender: FDA-Public Use
  Company Number: 20063352

PATIENT
  Sex: Male

DRUGS (9)
  1. LIORESAL [Suspect]
     Indication: MUSCLE SPASTICITY
     Dosage: 243; DECREASED TO 190 MCG, D
  2. ORAL BACLOFEN 10 MG [Concomitant]
  3. CLONIDINE [Concomitant]
  4. M [Concomitant]
  5. M [Concomitant]
  6. M [Concomitant]
  7. M [Concomitant]
  8. M [Concomitant]
  9. M, [Concomitant]

REACTIONS (8)
  - CATHETER RELATED COMPLICATION [None]
  - DRUG WITHDRAWAL SYNDROME [None]
  - MUSCLE SPASTICITY [None]
  - OVERDOSE [None]
  - PAIN [None]
  - PRIAPISM [None]
  - PRURITUS [None]
  - RESPIRATORY ARREST [None]
